FAERS Safety Report 12628785 (Version 1)
Quarter: 2016Q3

REPORT INFORMATION
  Report Type: Report from Study
  Country: FR (occurrence: FR)
  Receive Date: 20160808
  Receipt Date: 20160808
  Transmission Date: 20161109
  Serious: Yes (Hospitalization)
  Sender: FDA-Public Use
  Company Number: FR-ROCHE-1086040

PATIENT
  Age: 69 Year
  Sex: Male

DRUGS (10)
  1. ZELITREX [Concomitant]
     Active Substance: VALACYCLOVIR HYDROCHLORIDE
     Route: 065
     Dates: start: 20110623
  2. INEXIUM [Concomitant]
     Active Substance: ESOMEPRAZOLE
     Route: 065
     Dates: start: 20110111
  3. MYFORTIC [Concomitant]
     Active Substance: MYCOPHENOLATE SODIUM
     Route: 065
     Dates: start: 20110727
  4. KARDEGIC [Concomitant]
     Active Substance: ASPIRIN LYSINE
     Route: 065
     Dates: start: 2010
  5. BACTRIM [Concomitant]
     Active Substance: SULFAMETHOXAZOLE\TRIMETHOPRIM
     Dosage: 800:160 MG
     Route: 002
     Dates: start: 20110111
  6. CORTANCYL [Concomitant]
     Active Substance: PREDNISONE
     Route: 065
     Dates: start: 20110705
  7. RITUXIMAB [Suspect]
     Active Substance: RITUXIMAB
     Indication: PROPHYLAXIS AGAINST TRANSPLANT REJECTION
     Route: 042
     Dates: start: 20110627
  8. PROGRAF [Concomitant]
     Active Substance: TACROLIMUS\TACROLIMUS ANHYDROUS
     Route: 065
     Dates: start: 20110111
  9. TAHOR [Concomitant]
     Active Substance: ATORVASTATIN CALCIUM
     Route: 065
     Dates: start: 2010
  10. KREDEX [Concomitant]
     Active Substance: CARVEDILOL
     Route: 065

REACTIONS (3)
  - Hypogammaglobulinaemia [Not Recovered/Not Resolved]
  - Nocardiosis [Not Recovered/Not Resolved]
  - Lung disorder [Not Recovered/Not Resolved]

NARRATIVE: CASE EVENT DATE: 20111122
